FAERS Safety Report 9010998 (Version 5)
Quarter: 2014Q2

REPORT INFORMATION
  Report Type: Spontaneous
  Country: US (occurrence: US)
  Receive Date: 20130109
  Receipt Date: 20140626
  Transmission Date: 20141212
  Serious: Yes (Disabling)
  Sender: FDA-Public Use
  Company Number: US-009507513-1301USA002419

PATIENT
  Sex: Male
  Weight: 69.84 kg

DRUGS (1)
  1. PROPECIA [Suspect]
     Indication: ANDROGENETIC ALOPECIA
     Dosage: 1 MG, UNK
     Route: 048
     Dates: start: 200001, end: 2004

REACTIONS (26)
  - Anxiety [Not Recovered/Not Resolved]
  - Erectile dysfunction [Recovered/Resolved]
  - Testicular pain [Recovered/Resolved]
  - Depression [Not Recovered/Not Resolved]
  - Palpitations [Unknown]
  - Back pain [Unknown]
  - Road traffic accident [Unknown]
  - Dysuria [Unknown]
  - Muscle spasms [Unknown]
  - Haemorrhoids [Unknown]
  - Colitis ulcerative [Unknown]
  - Anal fissure [Recovered/Resolved]
  - Drug ineffective [Unknown]
  - Testicular pain [Recovered/Resolved]
  - Pollakiuria [Recovered/Resolved]
  - Prostatitis [Recovered/Resolved]
  - Organic erectile dysfunction [Recovered/Resolved]
  - Urethritis [Unknown]
  - Painful ejaculation [Unknown]
  - Angiopathy [Unknown]
  - Chest pain [Unknown]
  - Stress [Not Recovered/Not Resolved]
  - Arthralgia [Unknown]
  - Abdominal pain lower [Unknown]
  - Pollakiuria [Not Recovered/Not Resolved]
  - Haematospermia [Not Recovered/Not Resolved]
